FAERS Safety Report 12473161 (Version 2)
Quarter: 2016Q3

REPORT INFORMATION
  Report Type: Spontaneous
  Country: US (occurrence: US)
  Receive Date: 20160616
  Receipt Date: 20160914
  Transmission Date: 20161109
  Serious: No
  Sender: FDA-Public Use
  Company Number: US-BEH-2016070331

PATIENT
  Sex: Male
  Weight: 59.41 kg

DRUGS (33)
  1. FLUOXETINE [Concomitant]
     Active Substance: FLUOXETINE HYDROCHLORIDE
  2. ZEMAIRA [Suspect]
     Active Substance: .ALPHA.1-PROTEINASE INHIBITOR HUMAN
     Indication: ALPHA-1 ANTI-TRYPSIN DEFICIENCY
     Dosage: 60 MG/KG, QW
     Route: 042
  3. DIPHENHYDRAMINE. [Concomitant]
     Active Substance: DIPHENHYDRAMINE
  4. ASPIRIN. [Concomitant]
     Active Substance: ASPIRIN
  5. VOLTAREN [Concomitant]
     Active Substance: DICLOFENAC SODIUM
  6. SYMBICORT [Concomitant]
     Active Substance: BUDESONIDE\FORMOTEROL FUMARATE DIHYDRATE
  7. PANTOPRAZOLE [Concomitant]
     Active Substance: PANTOPRAZOLE SODIUM
  8. NYSTATIN. [Concomitant]
     Active Substance: NYSTATIN
  9. PLAQUENIL                          /00072602/ [Concomitant]
     Active Substance: HYDROXYCHLOROQUINE DIPHOSPHATE
  10. PREDNISONE. [Concomitant]
     Active Substance: PREDNISONE
  11. AZITHROMYCIN ANHYDROUS. [Concomitant]
     Active Substance: AZITHROMYCIN ANHYDROUS
  12. METHOTREXATE. [Concomitant]
     Active Substance: METHOTREXATE
  13. CEFEPIME [Concomitant]
     Active Substance: CEFEPIME HYDROCHLORIDE
  14. DAKINS FULL [Concomitant]
     Active Substance: SODIUM HYPOCHLORITE
  15. LASIX [Concomitant]
     Active Substance: FUROSEMIDE
  16. ACETAMINOPHEN AND CODEINE [Concomitant]
     Active Substance: ACETAMINOPHEN\CODEINE PHOSPHATE
  17. LORAZEPAM. [Concomitant]
     Active Substance: LORAZEPAM
  18. SPIRIVA [Concomitant]
     Active Substance: TIOTROPIUM BROMIDE MONOHYDRATE
  19. SILVER NITRATE. [Concomitant]
     Active Substance: SILVER NITRATE
  20. OXYGEN. [Concomitant]
     Active Substance: OXYGEN
  21. GABAPENTIN. [Concomitant]
     Active Substance: GABAPENTIN
  22. NASONEX [Concomitant]
     Active Substance: MOMETASONE FUROATE
  23. LORATADINE. [Concomitant]
     Active Substance: LORATADINE
  24. FLUCONAZOLE. [Concomitant]
     Active Substance: FLUCONAZOLE
  25. MUPIROCIN. [Concomitant]
     Active Substance: MUPIROCIN
  26. CLOTRIMAZOLE. [Concomitant]
     Active Substance: CLOTRIMAZOLE
  27. MUCINEX EXPECTORANT [Concomitant]
  28. VITAMIN D                          /00107901/ [Concomitant]
     Active Substance: ERGOCALCIFEROL
  29. SODIUM CHLORIDE. [Concomitant]
     Active Substance: SODIUM CHLORIDE
  30. EPIPEN [Concomitant]
     Active Substance: EPINEPHRINE
  31. VICODIN ES [Concomitant]
     Active Substance: ACETAMINOPHEN\HYDROCODONE BITARTRATE
  32. TRAMADOL. [Concomitant]
     Active Substance: TRAMADOL
  33. ALBUTEROL                          /00139501/ [Concomitant]
     Active Substance: ALBUTEROL

REACTIONS (1)
  - Feeling hot [Unknown]
